FAERS Safety Report 4554804-5 (Version None)
Quarter: 2005Q1

REPORT INFORMATION
  Report Type: 
  Country: None (occurrence: None)
  Receive Date: 20041227
  Receipt Date: 20040615
  Transmission Date: 20050727
  Serious: Yes (Other)
  Sender: FDA-Public Use
  Company Number: 2003-05809

PATIENT
  Age: 41 Year
  Sex: Male
  Weight: 178 kg

DRUGS (4)
  1. VIREAD [Suspect]
     Indication: HIV INFECTION
     Dosage: 300 MG, ONCE A DAY, ORAL
     Route: 048
     Dates: start: 20020311, end: 20030609
  2. NSAID (NSAID'S) [Suspect]
  3. STAVUDINE [Concomitant]
  4. KALETRA [Concomitant]

REACTIONS (1)
  - BLOOD CREATININE INCREASED [None]
